FAERS Safety Report 6955363-X (Version None)
Quarter: 2010Q3

REPORT INFORMATION
  Report Type: 
  Country: None (occurrence: None)
  Receive Date: 20100830
  Receipt Date: 20100816
  Transmission Date: 20110219
  Serious: Yes (Other)
  Sender: FDA-Public Use
  Company Number: US-ELI_LILLY_AND_COMPANY-US201008008254

PATIENT
  Age: 64 Year
  Sex: Male
  Weight: 74.83 kg

DRUGS (5)
  1. CIALIS [Suspect]
     Indication: SEXUAL DYSFUNCTION
     Dosage: 10 MG, WEEKLY (1/W)
  2. CIALIS [Suspect]
     Dosage: 20 MG, WEEKLY (1/W)
  3. VIAGRA [Concomitant]
     Indication: SEXUAL DYSFUNCTION
     Dosage: 50 MG, AS NEEDED
  4. VIAGRA [Concomitant]
     Dosage: 60 MG, AS NEEDED
  5. VIAGRA [Concomitant]
     Dosage: 100 MG, AS NEEDED

REACTIONS (2)
  - PHOTOPSIA [None]
  - VITREOUS DETACHMENT [None]
